FAERS Safety Report 8913623 (Version 1)
Quarter: 2012Q4

REPORT INFORMATION
  Report Type: 
  Country: JP (occurrence: JP)
  Receive Date: 20121119
  Receipt Date: 20121119
  Transmission Date: 20130627
  Serious: Yes (Death)
  Sender: FDA-Public Use
  Company Number: JP-SANOFI-AVENTIS-2012SA078451

PATIENT
  Age: 53 Year
  Sex: Female

DRUGS (8)
  1. AMARYL [Suspect]
     Indication: DIABETES MELLITUS
     Route: 048
  2. DETRUSITOL [Concomitant]
     Route: 048
  3. BLONANSERIN [Concomitant]
     Route: 048
  4. DORAL [Concomitant]
     Route: 048
  5. SILECE [Concomitant]
     Route: 048
  6. TASMOLIN [Concomitant]
     Route: 048
  7. SELBEX [Concomitant]
     Route: 048
  8. FLUDECASIN [Concomitant]
     Route: 058

REACTIONS (1)
  - Death [Fatal]
